FAERS Safety Report 7599463-2 (Version None)
Quarter: 2011Q3

REPORT INFORMATION
  Report Type: 
  Country: None (occurrence: None)
  Receive Date: 20110711
  Receipt Date: 20100116
  Transmission Date: 20111222
  Serious: Yes (Other)
  Sender: FDA-Public Use
  Company Number: US-BAYER-201011324NA

PATIENT
  Age: 72 Year
  Sex: Male
  Weight: 97 kg

DRUGS (22)
  1. COLCHICINE [Concomitant]
     Indication: GOUT
     Route: 048
  2. CALAN SLOW RELEASE [Concomitant]
     Dosage: 240 MG, LONG TERM USE
     Route: 048
  3. HEPARIN [Concomitant]
     Dosage: UNK
     Route: 042
     Dates: start: 20020405
  4. HEPARIN [Concomitant]
     Dosage: 250 MG
     Route: 042
     Dates: start: 20020409, end: 20020409
  5. ANCEF [Concomitant]
     Dosage: 2 G
     Route: 042
     Dates: start: 20020409, end: 20020409
  6. DYAZIDE [Concomitant]
     Dosage: 37.5 MG, UNK
     Route: 048
  7. NITROGLYCERIN [Concomitant]
     Dosage: UNK
     Route: 042
     Dates: start: 20020409, end: 20020409
  8. VERSED [Concomitant]
     Dosage: 3 MG,
     Route: 042
     Dates: start: 20020409, end: 20020409
  9. TRASYLOL [Suspect]
     Dosage: 1ML, INITIAL DOSE
     Route: 042
     Dates: start: 20020409, end: 20020409
  10. PROTAMINE SULFATE [Concomitant]
     Dosage: 15 ML, UNK
     Route: 042
  11. TRASYLOL [Suspect]
     Indication: CORONARY ARTERY BYPASS
     Dosage: 100 ML, LOADING DOSE
     Route: 042
     Dates: start: 20020409, end: 20020409
  12. TRASYLOL [Suspect]
     Dosage: 25 ML/HR INFUSION
     Route: 042
     Dates: start: 20020409, end: 20020409
  13. PROBENECID [Concomitant]
     Dosage: UNK UNK, BID
     Route: 048
  14. PHENYLEPHRINE HCL [Concomitant]
     Dosage: UNK
     Route: 042
     Dates: start: 20020409, end: 20020409
  15. TORADOL [Concomitant]
     Dosage: 30 MG, UNK
     Route: 042
     Dates: start: 20020409, end: 20020409
  16. REGLAN [Concomitant]
     Dosage: 10 MG, UNK
     Route: 042
     Dates: start: 20020409, end: 20020409
  17. ACETYLSALICYLIC ACID SRT [Concomitant]
     Dosage: 325 MG, LONG TERM USE
     Route: 048
  18. PROPOFOL [Concomitant]
     Dosage: 25 MCG/MIN
     Route: 042
  19. LIDOCAINE [Concomitant]
     Dosage: 250 MG, UNK
     Route: 042
     Dates: start: 20020409, end: 20020409
  20. ATROPINE [Concomitant]
     Dosage: 0.2 MG, UNK
     Route: 042
     Dates: start: 20020409, end: 20020409
  21. FENTANYL [Concomitant]
     Dosage: 100 MG, UNK
     Route: 042
     Dates: start: 20020409, end: 20020409
  22. BLOOD AND RELATED PRODUCTS [Concomitant]
     Dosage: 900 ML, UNK
     Route: 042
     Dates: start: 20020409, end: 20020409

REACTIONS (14)
  - RENAL FAILURE [None]
  - DEPRESSION [None]
  - PAIN [None]
  - RENAL IMPAIRMENT [None]
  - CEREBROVASCULAR ACCIDENT [None]
  - MYOCARDIAL INFARCTION [None]
  - ANXIETY [None]
  - UNEVALUABLE EVENT [None]
  - ANHEDONIA [None]
  - INJURY [None]
  - FEAR [None]
  - RENAL INJURY [None]
  - CARDIAC DISORDER [None]
  - ORGAN FAILURE [None]
